FAERS Safety Report 14548384 (Version 1)
Quarter: 2018Q1

REPORT INFORMATION
  Report Type: Spontaneous
  Country: US (occurrence: US)
  Receive Date: 20180219
  Receipt Date: 20180219
  Transmission Date: 20180509
  Serious: No
  Sender: FDA-Public Use
  Company Number: US-ROCHE-1904182

PATIENT
  Sex: Female

DRUGS (3)
  1. XOLAIR [Suspect]
     Active Substance: OMALIZUMAB
     Indication: IDIOPATHIC URTICARIA
     Dosage: FREQUENCY: AS DIRECTED BY THE PHYSICIAN
     Route: 058
  2. TERBINAFINE. [Concomitant]
     Active Substance: TERBINAFINE
     Route: 065
  3. CARISOPRODOL. [Concomitant]
     Active Substance: CARISOPRODOL
     Route: 065

REACTIONS (2)
  - Fatigue [Unknown]
  - Cough [Unknown]
